FAERS Safety Report 6683827-5 (Version None)
Quarter: 2010Q2

REPORT INFORMATION
  Report Type: 
  Country: None (occurrence: None)
  Receive Date: 20100416
  Receipt Date: 20090908
  Transmission Date: 20101027
  Serious: No
  Sender: FDA-Public Use
  Company Number: A0827808A

PATIENT
  Age: 1 Year
  Sex: Male

DRUGS (2)
  1. VUSION [Suspect]
     Indication: ECZEMA
     Route: 061
     Dates: start: 20090903, end: 20090904
  2. VUSION [Suspect]
     Indication: FUNGAL INFECTION

REACTIONS (2)
  - APPLICATION SITE ERYTHEMA [None]
  - OFF LABEL USE [None]
